FAERS Safety Report 9135273 (Version 1)
Quarter: 2013Q1

REPORT INFORMATION
  Report Type: Report from Study
  Country: AU (occurrence: AU)
  Receive Date: 20130304
  Receipt Date: 20130304
  Transmission Date: 20140127
  Serious: Yes (Life-Threatening, Hospitalization, Other)
  Sender: FDA-Public Use
  Company Number: AU-ASTRAZENECA-2013SE13527

PATIENT
  Age: 0 Day
  Sex: Female
  Weight: 4.4 kg

DRUGS (7)
  1. SEROQUEL XR [Suspect]
     Indication: PSYCHOTIC DISORDER
     Dosage: 200 MG AT NIGHT INITIATED PRE-PREGNANCY AND IS ONGOING
     Route: 064
  2. SEROQUEL XR [Suspect]
     Indication: PSYCHOTIC DISORDER
     Dosage: 100 MG/DAY INITIATED PRE-PREGNANCY AND IS ONGOING
     Route: 064
  3. PRISTIQ [Concomitant]
     Indication: ANTIDEPRESSANT THERAPY
     Dosage: 100 MG/DAY INITIATED PRE-PREGNANCY AND IS ONGOING
     Route: 064
  4. EPILIM [Concomitant]
     Indication: AFFECTIVE DISORDER
     Dosage: 1000 MG/DAY INITIATED PRE-PREGNANCY AND STOPPED AT 6/40 WEEKS
     Route: 064
  5. ELEVIT [Concomitant]
     Indication: SUPPLEMENTATION THERAPY
     Dosage: 1 TABLET/DAY INITIATED AT FIRST TRIMESTER AND STOPPED AT BIRTH
     Route: 064
  6. LABETALOL [Concomitant]
     Indication: HYPERTENSION
     Dosage: 200-400 MG/DAY INITIATED AT 26/40 WEEKS AND STOPPED IS ONGOING
     Route: 064
  7. RED IRON (LIQUID) [Concomitant]
     Indication: MINERAL SUPPLEMENTATION
     Dosage: 5 ML/DAY INITIATED AT THIRD TRIMESTER AND STOPPED AT BIRTH
     Route: 064

REACTIONS (2)
  - Drug withdrawal syndrome [Recovered/Resolved]
  - Respiratory distress [Recovered/Resolved]
